FAERS Safety Report 17931726 (Version 2)
Quarter: 2021Q2

REPORT INFORMATION
  Report Type: Report from Study
  Country: NL (occurrence: NL)
  Receive Date: 20200624
  Receipt Date: 20210629
  Transmission Date: 20210717
  Serious: Yes (Other)
  Sender: FDA-Public Use
  Company Number: NL-TEVA-674230ISR

PATIENT
  Age: 65 Year
  Sex: Male

DRUGS (9)
  1. COTRIMOXAZOLE [Suspect]
     Active Substance: SULFAMETHOXAZOLE\TRIMETHOPRIM
     Route: 065
  2. VANCOMYCINE [Suspect]
     Active Substance: VANCOMYCIN
     Route: 065
  3. PREDNISON [Concomitant]
     Active Substance: PREDNISONE
     Dosage: 500 MILLIGRAM DAILY;
     Dates: start: 20160112, end: 20160112
  4. PIPPERACILLINE/TAZOBACT [Suspect]
     Active Substance: PIPERACILLIN SODIUM\TAZOBACTAM SODIUM
     Route: 065
  5. DOXORUBICINE [Concomitant]
     Active Substance: DOXORUBICIN
     Indication: CHEMOTHERAPY
     Dosage: 100 MILLIGRAM DAILY;
     Dates: start: 20160112, end: 20160112
  6. VINCRISTINE [Concomitant]
     Active Substance: VINCRISTINE
     Indication: CHEMOTHERAPY
     Dosage: 2 MILLIGRAM DAILY;
     Dates: start: 20160112, end: 20160112
  7. RITUXIMAB. [Concomitant]
     Active Substance: RITUXIMAB
     Indication: CHEMOTHERAPY
     Dosage: 700 MILLIGRAM DAILY;
     Dates: start: 20160112, end: 20160112
  8. LONQUEX 6 MG, OPLOSSING VOOR INJECTIE [Suspect]
     Active Substance: LIPEGFILGRASTIM
     Indication: PROPHYLAXIS
     Dosage: 6 MILLIGRAM DAILY;
     Route: 058
     Dates: start: 20160113
  9. CYCLOPHOSPHAMIDE. [Concomitant]
     Active Substance: CYCLOPHOSPHAMIDE
     Indication: CHEMOTHERAPY
     Dosage: 1447 MILLIGRAM DAILY;
     Dates: start: 20160112, end: 20160112

REACTIONS (3)
  - Pneumonia [Recovered/Resolved]
  - Infective thrombosis [Recovered/Resolved]
  - Hypersensitivity [Recovered/Resolved]

NARRATIVE: CASE EVENT DATE: 20160209
